FAERS Safety Report 7505762-2 (Version None)
Quarter: 2011Q2

REPORT INFORMATION
  Report Type: 
  Country: None (occurrence: None)
  Receive Date: 20110526
  Receipt Date: 20110516
  Transmission Date: 20111010
  Serious: Yes (Hospitalization)
  Sender: FDA-Public Use
  Company Number: JP-ALEXION-A201100709

PATIENT
  Age: 28 Year
  Sex: Male

DRUGS (10)
  1. PLATELETS [Concomitant]
     Dosage: UNK
     Route: 042
     Dates: start: 20101106, end: 20101106
  2. PREDNISOLONE [Concomitant]
     Indication: PAROXYSMAL NOCTURNAL HAEMOGLOBINURIA
     Dosage: 20 MG, QD
     Dates: start: 20100525, end: 20101111
  3. SELBEX [Concomitant]
     Dosage: 100 MG, QD
     Dates: start: 20060511
  4. RED BLOOD CELLS [Concomitant]
     Dosage: UNK
     Route: 042
     Dates: start: 20101106, end: 20101106
  5. SULFAMETHOXAZOLE [Concomitant]
     Dosage: UNK
     Dates: start: 20061121
  6. SOLIRIS [Suspect]
     Dosage: 900 MG, Q2W
     Route: 042
     Dates: start: 20101202
  7. PREDNISOLONE [Concomitant]
     Dosage: 15 MG, QD
     Dates: start: 20101112
  8. ASPIRIN [Concomitant]
     Dosage: 100 MG, QD
     Dates: start: 20040913
  9. SOLIRIS [Suspect]
     Indication: PAROXYSMAL NOCTURNAL HAEMOGLOBINURIA
     Dosage: 600 MG, QW
     Route: 042
     Dates: start: 20101105
  10. RABEPRAZOLE SODIUM [Concomitant]
     Dosage: 10 MG, QD
     Dates: start: 20060511

REACTIONS (1)
  - FEBRILE NEUTROPENIA [None]
